FAERS Safety Report 9758623 (Version 1)
Quarter: 2013Q4

REPORT INFORMATION
  Report Type: Spontaneous
  Country: US (occurrence: None)
  Receive Date: 20131216
  Receipt Date: 20131216
  Transmission Date: 20140711
  Serious: Yes (Hospitalization)
  Sender: FDA-Public Use
  Company Number: VISP-PR-1205S-0194

PATIENT
  Age: 66 Year
  Sex: Male

DRUGS (2)
  1. VISIPAQUE [Suspect]
     Indication: STENT PLACEMENT
     Dosage: 180 ML, SINGLE DOSE, INTRA-ARTERIAL?
     Route: 013
  2. VISIPAQUE [Suspect]
     Indication: DIAGNOSTIC PROCEDURE
     Dosage: 180 ML, SINGLE DOSE, INTRA-ARTERIAL?
     Route: 013

REACTIONS (5)
  - Anaphylactoid reaction [None]
  - Choking sensation [None]
  - Dyspnoea [None]
  - Erythema [None]
  - Swelling [None]
